FAERS Safety Report 5563743-2 (Version None)
Quarter: 2007Q4

REPORT INFORMATION
  Report Type: 
  Country: None (occurrence: None)
  Receive Date: 20071217
  Receipt Date: 20071207
  Transmission Date: 20080405
  Serious: Yes (Hospitalization)
  Sender: FDA-Public Use
  Company Number: ES-ELI_LILLY_AND_COMPANY-ES200712002317

PATIENT
  Age: 85 Year
  Sex: Female

DRUGS (3)
  1. FORTEO [Suspect]
     Indication: OSTEOPOROSIS
     Dosage: 20 UG, UNKNOWN
     Route: 058
     Dates: start: 20071001
  2. GELOCATIL [Concomitant]
     Indication: PAIN
  3. TRAMADOL HCL [Concomitant]
     Indication: PAIN

REACTIONS (1)
  - CARDIAC PACEMAKER INSERTION [None]
